FAERS Safety Report 17854052 (Version 1)
Quarter: 2020Q2

REPORT INFORMATION
  Report Type: Spontaneous
  Country: US (occurrence: US)
  Receive Date: 20200602
  Receipt Date: 20200602
  Transmission Date: 20200714
  Serious: Yes (Hospitalization)
  Sender: FDA-Public Use
  Company Number: None

PATIENT
  Age: 62 Year
  Sex: Female
  Weight: 72.6 kg

DRUGS (1)
  1. ARIMIDEX [Suspect]
     Active Substance: ANASTROZOLE
     Dates: end: 20200524

REACTIONS (5)
  - Magnetic resonance imaging brain abnormal [None]
  - Retention cyst [None]
  - Lacunar infarction [None]
  - Cerebrovascular accident [None]
  - White matter lesion [None]

NARRATIVE: CASE EVENT DATE: 20200525
